FAERS Safety Report 23513449 (Version 1)
Quarter: 2024Q1

REPORT INFORMATION
  Report Type: Report from Study
  Country: CA (occurrence: CA)
  Receive Date: 20240212
  Receipt Date: 20240212
  Transmission Date: 20240410
  Serious: Yes (Death)
  Sender: FDA-Public Use
  Company Number: CA-BAYER-2024A022482

PATIENT
  Age: 89 Year
  Sex: Male

DRUGS (1)
  1. EYLEA [Suspect]
     Active Substance: AFLIBERCEPT
     Indication: Age-related macular degeneration
     Dosage: STRENGTH: 40 MG/ML; INJECTED OS
     Dates: start: 20221117, end: 20240111

REACTIONS (1)
  - Death [Fatal]

NARRATIVE: CASE EVENT DATE: 20240127
